FAERS Safety Report 25171065 (Version 1)
Quarter: 2025Q2

REPORT INFORMATION
  Report Type: Spontaneous
  Country: US (occurrence: US)
  Receive Date: 20250408
  Receipt Date: 20250408
  Transmission Date: 20250716
  Serious: No
  Sender: ROCHE
  Company Number: US-ROCHE-10000245888

PATIENT

DRUGS (1)
  1. XOLAIR [Suspect]
     Active Substance: OMALIZUMAB
     Indication: Product used for unknown indication
     Route: 065

REACTIONS (6)
  - Nausea [Unknown]
  - Back pain [Unknown]
  - Thermal burn [Unknown]
  - Pruritus [Unknown]
  - Arthralgia [Unknown]
  - Dizziness [Unknown]
